FAERS Safety Report 23147855 (Version 1)
Quarter: 2023Q4

REPORT INFORMATION
  Report Type: Spontaneous
  Country: JP (occurrence: JP)
  Receive Date: 20231106
  Receipt Date: 20231106
  Transmission Date: 20240109
  Serious: Yes (Death)
  Sender: FDA-Public Use
  Company Number: JP-BAYER-2023A157014

PATIENT
  Sex: Male

DRUGS (12)
  1. EYLEA [Suspect]
     Active Substance: AFLIBERCEPT
     Indication: Retinopathy of prematurity
     Dosage: 0.4 MG, ONCE RIGHT EYE, SOLUTION FOR INJECTION, 40MG/ML
     Route: 031
     Dates: start: 20221111, end: 20221111
  2. EYLEA [Suspect]
     Active Substance: AFLIBERCEPT
     Dosage: 0.4 MG, ONCE SOLUTION FOR INJECTION, 40MG/ML
     Route: 031
     Dates: start: 20230228, end: 20230228
  3. UNSPECIFIED INGREDIENT [Suspect]
     Active Substance: UNSPECIFIED INGREDIENT
     Indication: Tricuspid valve repair
     Dosage: UNK
     Dates: start: 202306
  4. BENOXINATE HYDROCHLORIDE [Concomitant]
     Active Substance: BENOXINATE HYDROCHLORIDE
     Indication: Product used for unknown indication
     Dosage: BOTH EYES
  5. PENTAZOCINE [Concomitant]
     Active Substance: PENTAZOCINE
     Indication: Sedation
     Dosage: 0.3 MG, ONCE, ADMINISTERED EVERY TIME DURING TREATMENT
     Route: 042
  6. PIPERACILLIN SODIUM\TAZOBACTAM SODIUM [Concomitant]
     Active Substance: PIPERACILLIN SODIUM\TAZOBACTAM SODIUM
     Indication: Product used for unknown indication
  7. ESOMEPRAZOLE [Concomitant]
     Active Substance: ESOMEPRAZOLE
     Indication: Product used for unknown indication
     Dosage: UNK
  8. FUROSEMIDE [Concomitant]
     Active Substance: FUROSEMIDE
     Indication: Product used for unknown indication
     Dosage: DAILY DOSE 3.5 MG
     Route: 048
  9. LEVOTHYROXINE [Concomitant]
     Active Substance: LEVOTHYROXINE
     Indication: Product used for unknown indication
     Dosage: 7 MG, ONCE
  10. SPIRONOLACTONE [Concomitant]
     Active Substance: SPIRONOLACTONE
     Indication: Product used for unknown indication
     Dosage: DAILY DOSE 3.5 MG
     Route: 048
  11. CLARITHROMYCIN [Concomitant]
     Active Substance: CLARITHROMYCIN
     Indication: Product used for unknown indication
     Dosage: DAILY DOSE 7 MG
     Route: 048
  12. FAMOTIDINE [Concomitant]
     Active Substance: FAMOTIDINE
     Indication: Product used for unknown indication
     Dosage: DAILY DOSE 1.5 MG
     Route: 048

REACTIONS (1)
  - Post procedural complication [Fatal]

NARRATIVE: CASE EVENT DATE: 20230612
